FAERS Safety Report 16662676 (Version 1)
Quarter: 2019Q3

REPORT INFORMATION
  Report Type: Report from Study
  Country: US (occurrence: US)
  Receive Date: 20190802
  Receipt Date: 20190802
  Transmission Date: 20191004
  Serious: No
  Sender: FDA-Public Use
  Company Number: US-EXELIXIS-CABO-19019164

PATIENT
  Sex: Male

DRUGS (12)
  1. POTASSIUM [Concomitant]
     Active Substance: POTASSIUM
  2. LOSARTAN. [Concomitant]
     Active Substance: LOSARTAN
  3. ALLOPURINOL. [Concomitant]
     Active Substance: ALLOPURINOL
  4. ASPIRIN. [Concomitant]
     Active Substance: ASPIRIN
  5. ACETYLCYSTEINE. [Concomitant]
     Active Substance: ACETYLCYSTEINE
  6. PROCHLORPERAZINE. [Concomitant]
     Active Substance: PROCHLORPERAZINE
  7. CABOMETYX [Suspect]
     Active Substance: CABOZANTINIB S-MALATE
     Indication: RENAL CANCER
     Dosage: 40 MG, QD
     Route: 048
     Dates: start: 20180906
  8. SIMVASTATIN. [Concomitant]
     Active Substance: SIMVASTATIN
  9. FLUTICASONE. [Concomitant]
     Active Substance: FLUTICASONE
  10. FUROSEMIDE. [Concomitant]
     Active Substance: FUROSEMIDE
  11. METFORMIN [Concomitant]
     Active Substance: METFORMIN HYDROCHLORIDE
  12. OMEPRAZOLE. [Concomitant]
     Active Substance: OMEPRAZOLE

REACTIONS (1)
  - Decubitus ulcer [Not Recovered/Not Resolved]
